FAERS Safety Report 6028977-1 (Version None)
Quarter: 2009Q1

REPORT INFORMATION
  Report Type: 
  Country: None (occurrence: None)
  Receive Date: 20090106
  Receipt Date: 20081231
  Transmission Date: 20090719
  Serious: Yes (Other)
  Sender: FDA-Public Use
  Company Number: PHHY2008TW33145

PATIENT
  Sex: Female

DRUGS (8)
  1. ZOMETA [Suspect]
     Indication: BREAST CANCER
     Dosage: 4 MG MONTHLY
     Dates: start: 20080111
  2. ZOMETA [Suspect]
     Indication: METASTASES TO BONE
  3. AREDIA [Suspect]
     Dosage: 30 MG
     Dates: start: 20061004, end: 20061101
  4. CLODRONATE DISODIUM [Suspect]
     Indication: BREAST CANCER
     Dosage: 400 MG, TID
     Dates: start: 20060913, end: 20061004
  5. CAPECITABINE [Suspect]
     Dosage: UNK
     Dates: start: 20080630, end: 20080814
  6. XELODA [Concomitant]
  7. RADIOTHERAPY [Concomitant]
     Indication: METASTASES TO BONE
     Dosage: 4000 CGY
     Dates: start: 20030522, end: 20030712
  8. RADIOTHERAPY [Concomitant]
     Indication: SPINAL CORD COMPRESSION
     Dosage: UNK
     Dates: start: 20080403, end: 20080504

REACTIONS (9)
  - BONE LESION [None]
  - GINGIVAL ERYTHEMA [None]
  - GINGIVAL INFECTION [None]
  - GINGIVAL SWELLING [None]
  - MASTICATION DISORDER [None]
  - OSTEOMYELITIS [None]
  - OSTEONECROSIS [None]
  - SEQUESTRECTOMY [None]
  - TOOTHACHE [None]
